FAERS Safety Report 7356273-9 (Version None)
Quarter: 2011Q1

REPORT INFORMATION
  Report Type: 
  Country: None (occurrence: None)
  Receive Date: 20110316
  Receipt Date: 20110310
  Transmission Date: 20110831
  Serious: Yes (Other)
  Sender: FDA-Public Use
  Company Number: JP-PFIZER INC-2011052463

PATIENT
  Age: 70 Year
  Sex: Female
  Weight: 55 kg

DRUGS (1)
  1. ZITHROMAX [Suspect]
     Indication: INFECTION PROPHYLAXIS
     Dosage: 2 G, SINGLE
     Route: 048
     Dates: start: 20110208, end: 20110208

REACTIONS (3)
  - SHOCK [None]
  - BLOOD PRESSURE DECREASED [None]
  - DIARRHOEA [None]
